FAERS Safety Report 4416142-0 (Version None)
Quarter: 2004Q3

REPORT INFORMATION
  Report Type: 
  Country: None (occurrence: None)
  Receive Date: 20040804
  Receipt Date: 20040804
  Transmission Date: 20050211
  Serious: Yes (Life-Threatening)
  Sender: FDA-Public Use
  Company Number: None

PATIENT
  Age: 81 Year
  Sex: Female

DRUGS (1)
  1. ENOXAPARIN SODIUM [Suspect]
     Indication: HEART VALVE REPLACEMENT
     Dosage: 70 MG Q 12 HR
     Dates: start: 20020630, end: 20040702

REACTIONS (8)
  - ABSCESS [None]
  - ATRIAL FIBRILLATION [None]
  - BLOOD CREATININE ABNORMAL [None]
  - CEREBRAL ARTERY EMBOLISM [None]
  - COMA [None]
  - FISTULA [None]
  - HAEMORRHAGE [None]
  - INFECTION [None]
